FAERS Safety Report 9558383 (Version 2)
Quarter: 2013Q3

REPORT INFORMATION
  Report Type: Report from Study
  Country: US (occurrence: US)
  Receive Date: 20130926
  Receipt Date: 20130926
  Transmission Date: 20140515
  Serious: Yes (Hospitalization)
  Sender: FDA-Public Use
  Company Number: US-ABBVIE-10P-163-0690927-00

PATIENT
  Age: 51 Year
  Sex: Male
  Weight: 124.85 kg

DRUGS (10)
  1. HUMIRA [Suspect]
     Indication: PSORIASIS
     Dosage: ONCE
     Route: 058
     Dates: start: 20091020, end: 20091020
  2. HUMIRA [Suspect]
     Route: 058
     Dates: end: 20101202
  3. COMMERCIAL HUMIRA [Concomitant]
     Indication: PSORIASIS
     Dates: start: 200709
  4. TENORMIN [Concomitant]
     Indication: HYPERTENSION
     Dates: start: 1989
  5. ANSAID [Concomitant]
     Indication: JOINT STIFFNESS
     Dates: start: 1989
  6. ANSAID [Concomitant]
     Indication: PAIN
  7. METHOTREXATE [Concomitant]
     Indication: PSORIASIS
     Route: 030
     Dates: start: 20070111
  8. CORTICOSTEROIDS, DERMATOLOGICAL PREPARATIONS [Concomitant]
     Indication: PSORIASIS
     Dates: start: 1971
  9. METFORMIN [Concomitant]
     Indication: TYPE 2 DIABETES MELLITUS
     Dates: start: 201011
  10. TRIAMCINOLONE ACETONIDE [Concomitant]
     Indication: PSORIASIS
     Route: 061
     Dates: start: 20070111

REACTIONS (1)
  - Hepatic cirrhosis [Not Recovered/Not Resolved]
